FAERS Safety Report 11005441 (Version 2)
Quarter: 2016Q2

REPORT INFORMATION
  Report Type: Spontaneous
  Country: US (occurrence: US)
  Receive Date: 20150409
  Receipt Date: 20160415
  Transmission Date: 20160815
  Serious: No
  Sender: FDA-Public Use
  Company Number: US-ALLERGAN-1425175US

PATIENT
  Sex: Female
  Weight: 77.1 kg

DRUGS (6)
  1. LUMIGAN [Suspect]
     Active Substance: BIMATOPROST
     Indication: MACULAR DEGENERATION
  2. ATORVASTATIN [Concomitant]
     Active Substance: ATORVASTATIN
     Indication: BLOOD CHOLESTEROL INCREASED
     Dosage: 10 MG, QD
     Route: 048
  3. ATENOLOL. [Concomitant]
     Active Substance: ATENOLOL
     Indication: HYPERTENSION
     Dosage: 50 MG, QD
     Route: 048
  4. LUMIGAN [Suspect]
     Active Substance: BIMATOPROST
     Indication: GLAUCOMA
     Dosage: 1 GTT, QD
     Route: 047
  5. ALLOPURINOL. [Concomitant]
     Active Substance: ALLOPURINOL
     Indication: GOUT
     Dosage: 10 MG, QD
  6. LUMIGAN [Suspect]
     Active Substance: BIMATOPROST
     Indication: ASTIGMATISM

REACTIONS (6)
  - Dry eye [Not Recovered/Not Resolved]
  - Eye pruritus [Recovered/Resolved]
  - Intraocular pressure fluctuation [Recovered/Resolved]
  - Lacrimation increased [Recovered/Resolved]
  - Drug prescribing error [Unknown]
  - Vitreous floaters [Not Recovered/Not Resolved]
